FAERS Safety Report 15710444 (Version 1)
Quarter: 2018Q4

REPORT INFORMATION
  Report Type: Spontaneous
  Country: US (occurrence: US)
  Receive Date: 20181211
  Receipt Date: 20181211
  Transmission Date: 20190205
  Serious: Yes (Disabling, Other)
  Sender: FDA-Public Use
  Company Number: US-JNJFOC-20181211187

PATIENT
  Age: 54 Year
  Sex: Male
  Weight: 104.33 kg

DRUGS (1)
  1. INVOKANA [Suspect]
     Active Substance: CANAGLIFLOZIN
     Indication: TYPE 2 DIABETES MELLITUS
     Route: 048
     Dates: start: 20150326

REACTIONS (4)
  - Leg amputation [Unknown]
  - Extremity contracture [Unknown]
  - Foot amputation [Unknown]
  - Gangrene [Unknown]

NARRATIVE: CASE EVENT DATE: 201801
